FAERS Safety Report 9708348 (Version 3)
Quarter: 2014Q1

REPORT INFORMATION
  Report Type: Report from Study
  Country: US (occurrence: US)
  Receive Date: 20131125
  Receipt Date: 20140110
  Transmission Date: 20141002
  Serious: Yes (Hospitalization)
  Sender: FDA-Public Use
  Company Number: US-ACTELION-A-US2013-90722

PATIENT
  Age: 58 Year
  Sex: Male

DRUGS (3)
  1. VELETRI [Suspect]
     Indication: COR PULMONALE CHRONIC
     Dosage: 14 NG/KG, PER MIN
     Route: 042
     Dates: start: 20130830
  2. SILDENAFIL [Concomitant]
  3. COUMADIN [Concomitant]

REACTIONS (2)
  - Heart valve replacement [Unknown]
  - Fluid overload [Unknown]
